FAERS Safety Report 8718315 (Version 3)
Quarter: 2012Q4

REPORT INFORMATION
  Report Type: 
  Country: US (occurrence: US)
  Receive Date: 20120810
  Receipt Date: 20121218
  Transmission Date: 20130627
  Serious: Yes (Other)
  Sender: FDA-Public Use
  Company Number: CHPA2012US017202

PATIENT
  Age: 70 Year
  Sex: Female

DRUGS (3)
  1. EXCEDRIN EXTRA STRENGTH [Suspect]
     Indication: CARDIAC DISORDER
     Dosage: 1 DF, QD, 5-6 years
     Route: 048
  2. EXCEDRIN EXTRA STRENGTH [Suspect]
     Dosage: 100 in a month
     Route: 048
  3. DECONGESTANTS AND ANTIALLERGICS [Suspect]
     Dosage: Unk, Unk

REACTIONS (6)
  - Blood pressure increased [Recovered/Resolved]
  - Eye disorder [Recovered/Resolved]
  - Off label use [Unknown]
  - Underdose [Unknown]
  - Maternal exposure during pregnancy [Recovered/Resolved]
  - Product physical issue [None]
